FAERS Safety Report 5103507-7 (Version None)
Quarter: 2006Q3

REPORT INFORMATION
  Report Type: 
  Country: None (occurrence: None)
  Receive Date: 20060908
  Receipt Date: 20060825
  Transmission Date: 20061208
  Serious: Yes (Other)
  Sender: FDA-Public Use
  Company Number: US-2006-021871

PATIENT
  Age: 26 Year
  Sex: Female

DRUGS (1)
  1. MIRENA [Suspect]
     Indication: CONTRACEPTION
     Dosage: 20 UG/DAY, CONT, INTRA-UTERINE
     Route: 015
     Dates: start: 20060608

REACTIONS (7)
  - BACK PAIN [None]
  - COMPLICATION OF DEVICE INSERTION [None]
  - CYST [None]
  - GALLBLADDER OPERATION [None]
  - HYPOAESTHESIA [None]
  - METRORRHAGIA [None]
  - MUSCLE SPASMS [None]
